FAERS Safety Report 23328537 (Version 3)
Quarter: 2024Q1

REPORT INFORMATION
  Report Type: Report from Study
  Country: US (occurrence: US)
  Receive Date: 20231221
  Receipt Date: 20240301
  Transmission Date: 20240410
  Serious: No
  Sender: FDA-Public Use
  Company Number: US-ACADIA PHARMACEUTICALS INC.-ACA-2023-TRF-005497

PATIENT
  Sex: Female

DRUGS (5)
  1. DAYBUE [Suspect]
     Active Substance: TROFINETIDE
     Indication: Rett syndrome
     Dosage: 25 MILLILITER, BID
     Route: 048
  2. DAYBUE [Suspect]
     Active Substance: TROFINETIDE
     Dosage: NOT ABLE TO GET THE FULL DOSE ON SOME DAYS
     Route: 048
  3. DAYBUE [Suspect]
     Active Substance: TROFINETIDE
     Dosage: 25 MILLILITER, BID
     Route: 048
  4. DAYBUE [Suspect]
     Active Substance: TROFINETIDE
     Dosage: 5 MILLILITER, BID
     Route: 048
  5. MEDICAL FOOD [Concomitant]
     Active Substance: MEDICAL FOOD
     Indication: Faeces soft

REACTIONS (7)
  - Gastroenteritis viral [Not Recovered/Not Resolved]
  - Hypophagia [Unknown]
  - Faeces soft [Not Recovered/Not Resolved]
  - Gastroenteritis viral [Recovering/Resolving]
  - Underdose [Not Recovered/Not Resolved]
  - Vomiting [Unknown]
  - Nasopharyngitis [Unknown]
